FAERS Safety Report 17106110 (Version 1)
Quarter: 2019Q4

REPORT INFORMATION
  Report Type: Spontaneous
  Country: US (occurrence: US)
  Receive Date: 20191203
  Receipt Date: 20191203
  Transmission Date: 20200122
  Serious: No
  Sender: FDA-Public Use
  Company Number: US-NOVOPROD-682924

PATIENT
  Age: 62 Year
  Sex: Female

DRUGS (2)
  1. XULTOPHY 100/3.6 [Suspect]
     Active Substance: INSULIN DEGLUDEC\LIRAGLUTIDE
     Indication: TYPE 2 DIABETES MELLITUS
     Dosage: 50-55 UNITS
     Route: 058
     Dates: start: 2019
  2. XULTOPHY 100/3.6 [Suspect]
     Active Substance: INSULIN DEGLUDEC\LIRAGLUTIDE
     Dosage: 60 UNITS
     Route: 058
     Dates: start: 2019

REACTIONS (4)
  - Fatigue [Not Recovered/Not Resolved]
  - Asthenia [Unknown]
  - Glycosylated haemoglobin increased [Unknown]
  - Tremor [Recovered/Resolved]

NARRATIVE: CASE EVENT DATE: 201905
